FAERS Safety Report 10260185 (Version 2)
Quarter: 2014Q3

REPORT INFORMATION
  Report Type: Spontaneous
  Country: GB (occurrence: GB)
  Receive Date: 20140625
  Receipt Date: 20140804
  Transmission Date: 20150326
  Serious: Yes (Other)
  Sender: FDA-Public Use
  Company Number: GB-ABBVIE-14P-167-1250937-00

PATIENT
  Age: 24 Year
  Sex: Female
  Weight: 91.3 kg

DRUGS (2)
  1. HUMIRA [Suspect]
     Active Substance: ADALIMUMAB
     Indication: PSORIASIS
     Dates: start: 20120530
  2. DEPO INJECTION [Concomitant]
     Indication: CONTRACEPTION
     Dosage: 3/12
     Route: 058
     Dates: start: 2011

REACTIONS (2)
  - Liver function test abnormal [Recovering/Resolving]
  - Alanine aminotransferase increased [Unknown]

NARRATIVE: CASE EVENT DATE: 20140603
